FAERS Safety Report 5744919-8 (Version None)
Quarter: 2008Q2

REPORT INFORMATION
  Report Type: 
  Country: None (occurrence: None)
  Receive Date: 20080520
  Receipt Date: 20080507
  Transmission Date: 20081010
  Serious: Yes (Other)
  Sender: FDA-Public Use
  Company Number: US-AMGEN-US278117

PATIENT
  Age: 40 Year
  Sex: Male

DRUGS (3)
  1. SENSIPAR [Suspect]
     Indication: HYPERPARATHYROIDISM SECONDARY
     Route: 048
     Dates: start: 20080101
  2. HECTORAL [Concomitant]
     Route: 065
  3. VITAMIN D [Concomitant]
     Route: 065
     Dates: end: 20080401

REACTIONS (3)
  - BLOOD PARATHYROID HORMONE DECREASED [None]
  - BLOOD PHOSPHORUS INCREASED [None]
  - REBOUND EFFECT [None]
